FAERS Safety Report 24416751 (Version 4)
Quarter: 2024Q4

REPORT INFORMATION
  Report Type: Spontaneous
  Country: US (occurrence: US)
  Receive Date: 20241009
  Receipt Date: 20241018
  Transmission Date: 20250115
  Serious: Yes (Hospitalization)
  Sender: ROCHE
  Company Number: US-ROCHE-10000075331

PATIENT
  Sex: Female
  Weight: 46.4 kg

DRUGS (10)
  1. ALECENSA [Suspect]
     Active Substance: ALECTINIB HYDROCHLORIDE
     Indication: Non-small cell lung cancer
     Dosage: 4 150MG CAPSULES BY MOUTH TWICE A DAY
     Route: 048
     Dates: start: 20240523
  2. PEPCID [Concomitant]
     Active Substance: FAMOTIDINE
     Route: 048
  3. ATARAX [Concomitant]
     Active Substance: HYDROXYZINE HYDROCHLORIDE
     Dosage: EVERY 6 HOURS AS NEEDED
     Route: 048
  4. ATIVAN [Concomitant]
     Active Substance: LORAZEPAM
     Dosage: EVERY 6 HOURS AS NEEDED
     Route: 048
  5. ZOFRAN [Concomitant]
     Active Substance: ONDANSETRON HYDROCHLORIDE
     Dosage: EVERY 8 HOURS AS NEEDED
     Route: 048
  6. COMPAZINE [Concomitant]
     Active Substance: PROCHLORPERAZINE MALEATE
     Route: 048
  7. OXYCODONE [Concomitant]
     Active Substance: OXYCODONE
     Route: 048
  8. REQUIP [Concomitant]
     Active Substance: ROPINIROLE HYDROCHLORIDE
     Dosage: CALLER BELIEVES THE FREQUENCY WAS ONCE A DAY BUT DID NOT KNOW FOR?SURE
     Route: 048
  9. VANCOMYCIN [Concomitant]
     Active Substance: VANCOMYCIN
  10. ZOSYN [Concomitant]
     Active Substance: PIPERACILLIN SODIUM\TAZOBACTAM SODIUM

REACTIONS (4)
  - Necrosis [Unknown]
  - Muscle abscess [Unknown]
  - Malignant neoplasm progression [Unknown]
  - Drug ineffective [Unknown]
